FAERS Safety Report 6543638-8 (Version None)
Quarter: 2010Q1

REPORT INFORMATION
  Report Type: 
  Country: None (occurrence: None)
  Receive Date: 20100120
  Receipt Date: 20100115
  Transmission Date: 20100710
  Serious: Yes (Hospitalization, Other)
  Sender: FDA-Public Use
  Company Number: US-MERCK-0709USA02175

PATIENT
  Age: 59 Year
  Sex: Female

DRUGS (2)
  1. FOSAMAX [Suspect]
     Indication: OSTEOPOROSIS
     Route: 048
     Dates: start: 20020801, end: 20070101
  2. HORMONES (UNSPECIFIED) [Concomitant]
     Route: 065
     Dates: start: 19970101, end: 20040101

REACTIONS (31)
  - ANXIETY [None]
  - ARTHRITIS [None]
  - BACK PAIN [None]
  - BREAST CANCER STAGE III [None]
  - CHEST PAIN [None]
  - DEAFNESS [None]
  - EAR INFECTION [None]
  - EXOSTOSIS [None]
  - FAMILY STRESS [None]
  - FATIGUE [None]
  - HAEMANGIOMA [None]
  - HEADACHE [None]
  - HEART RATE IRREGULAR [None]
  - HYPERCHOLESTEROLAEMIA [None]
  - HYPERLIPIDAEMIA [None]
  - HYPERTENSION [None]
  - LENTIGO [None]
  - MELANOCYTIC NAEVUS [None]
  - MIXED HYPERLIPIDAEMIA [None]
  - MYALGIA [None]
  - ORAL DISORDER [None]
  - OSTEONECROSIS [None]
  - PALPITATIONS [None]
  - PATELLOFEMORAL PAIN SYNDROME [None]
  - POLLAKIURIA [None]
  - SEBORRHOEIC KERATOSIS [None]
  - SINUSITIS [None]
  - STRESS [None]
  - THYROID DISORDER [None]
  - TOOTH DISORDER [None]
  - XANTHOMA [None]
